FAERS Safety Report 4523337-4 (Version None)
Quarter: 2004Q4

REPORT INFORMATION
  Report Type: 
  Country: None (occurrence: None)
  Receive Date: 20041209
  Receipt Date: 20041209
  Transmission Date: 20050328
  Serious: No
  Sender: FDA-Public Use
  Company Number: None

PATIENT
  Age: 80 Year
  Sex: Male
  Weight: 81.6475 kg

DRUGS (4)
  1. CELEBREX [Suspect]
     Indication: ARTHRITIS
     Dosage: 200MG DAILY
     Dates: start: 20041120, end: 20041127
  2. CELEBREX [Suspect]
     Indication: GOUT
     Dosage: 200MG DAILY
     Dates: start: 20041120, end: 20041127
  3. INDOMETHACIN [Suspect]
     Indication: ARTHRITIS
     Dosage: 25MG  TWICE D
     Dates: start: 20041201, end: 20041202
  4. INDOMETHACIN [Suspect]
     Indication: GOUT
     Dosage: 25MG  TWICE D
     Dates: start: 20041201, end: 20041202

REACTIONS (8)
  - CARDIAC FLUTTER [None]
  - DIZZINESS [None]
  - DYSPNOEA [None]
  - EYE IRRITATION [None]
  - EYE PRURITUS [None]
  - HYPOAESTHESIA [None]
  - ORAL DISCOMFORT [None]
  - ORAL MUCOSAL BLISTERING [None]
